FAERS Safety Report 17784009 (Version 1)
Quarter: 2020Q2

REPORT INFORMATION
  Report Type: Spontaneous
  Country: FR (occurrence: FR)
  Receive Date: 20200513
  Receipt Date: 20200513
  Transmission Date: 20200714
  Serious: Yes (Hospitalization)
  Sender: FDA-Public Use
  Company Number: FR-PURDUE-GBR-2020-0076676

PATIENT
  Age: 58 Year
  Sex: Female

DRUGS (8)
  1. PRIMPERAN [Suspect]
     Active Substance: METOCLOPRAMIDE HYDROCHLORIDE
     Indication: PROPHYLAXIS OF NAUSEA AND VOMITING
     Dosage: UNK (NON RENSEIGNEE)
     Route: 042
     Dates: start: 20200323, end: 20200414
  2. FLUCONAZOLE. [Suspect]
     Active Substance: FLUCONAZOLE
     Indication: GASTROINTESTINAL CANDIDIASIS
     Dosage: UNK (NON RENSEIGNEE)
     Route: 042
     Dates: start: 20200227, end: 20200403
  3. ACUPAN [Suspect]
     Active Substance: NEFOPAM HYDROCHLORIDE
     Indication: PAIN
     Dosage: UNK (NON RENSEIGNEE)
     Route: 042
     Dates: start: 20200316, end: 20200406
  4. IMOVANE [Suspect]
     Active Substance: ZOPICLONE
     Indication: INSOMNIA
     Dosage: UNK (NON RENSEIGNEE)
     Route: 048
     Dates: start: 20200329
  5. AMLOR [Suspect]
     Active Substance: AMLODIPINE BESYLATE
     Indication: HYPERTENSION
     Dosage: UNK (NON RENSEIGNEE)
     Route: 048
     Dates: start: 20200320, end: 20200414
  6. AUGMENTIN [Suspect]
     Active Substance: AMOXICILLIN\CLAVULANATE POTASSIUM
     Indication: SUPERINFECTION
     Dosage: UNK (DU 15 AU 19/03 ET REPRIS LE 20/03)
     Route: 048
     Dates: start: 20200315, end: 20200414
  7. OXYCODONE HYDROCHLORIDE. [Suspect]
     Active Substance: OXYCODONE HYDROCHLORIDE
     Indication: PAIN
     Dosage: UNK (NON RENSEIGNEE)
     Route: 042
     Dates: start: 20200406
  8. PANTOPRAZOLE [Suspect]
     Active Substance: PANTOPRAZOLE
     Indication: OESOPHAGITIS
     Dosage: 40 MG, DAILY (40MG/JOUR)
     Route: 042
     Dates: start: 20200317, end: 20200414

REACTIONS (1)
  - Stevens-Johnson syndrome [Not Recovered/Not Resolved]

NARRATIVE: CASE EVENT DATE: 20200411
